FAERS Safety Report 12001059 (Version 3)
Quarter: 2016Q2

REPORT INFORMATION
  Report Type: Spontaneous
  Country: US (occurrence: US)
  Receive Date: 20160204
  Receipt Date: 20160519
  Transmission Date: 20160815
  Serious: No
  Sender: FDA-Public Use
  Company Number: PHEH2016US002689

PATIENT
  Age: 65 Year
  Sex: Female

DRUGS (1)
  1. RECLAST [Suspect]
     Active Substance: ZOLEDRONIC ACID
     Indication: OSTEOPOROSIS
     Dosage: 5 MG, UNK
     Route: 042
     Dates: start: 20160128

REACTIONS (14)
  - Pruritus [Unknown]
  - Rash [Recovering/Resolving]
  - Dehydration [Unknown]
  - Nasopharyngitis [Recovering/Resolving]
  - Musculoskeletal disorder [Unknown]
  - Vomiting [Recovering/Resolving]
  - Asthenia [Recovering/Resolving]
  - Cardiac imaging procedure abnormal [Unknown]
  - Blood creatinine decreased [Unknown]
  - Malaise [Unknown]
  - Pyrexia [Unknown]
  - Blood urea abnormal [Unknown]
  - Nausea [Recovering/Resolving]
  - Full blood count abnormal [Unknown]

NARRATIVE: CASE EVENT DATE: 20160128
